FAERS Safety Report 9149901 (Version 1)
Quarter: 2013Q1

REPORT INFORMATION
  Report Type: Spontaneous
  Country: US (occurrence: None)
  Receive Date: 20130301
  Receipt Date: 20130301
  Transmission Date: 20140127
  Serious: Yes (Hospitalization)
  Sender: FDA-Public Use
  Company Number: None

PATIENT
  Age: 74 Year
  Sex: Female
  Weight: 47.7 kg

DRUGS (1)
  1. WARFARIN [Suspect]
     Dosage: 5 MG AS DIRECTED PO
     Route: 048

REACTIONS (3)
  - Upper respiratory tract infection [None]
  - Asthenia [None]
  - International normalised ratio increased [None]
